FAERS Safety Report 4757331-5 (Version None)
Quarter: 2005Q3

REPORT INFORMATION
  Report Type: 
  Country: None (occurrence: None)
  Receive Date: 20050829
  Receipt Date: 20050812
  Transmission Date: 20060218
  Serious: Yes (Other)
  Sender: FDA-Public Use
  Company Number: 2005PV001034

PATIENT
  Sex: Female

DRUGS (1)
  1. BYETTA [Suspect]

REACTIONS (2)
  - DISEASE RECURRENCE [None]
  - PANCREATITIS [None]
